FAERS Safety Report 9015700 (Version 2)
Quarter: 2013Q1

REPORT INFORMATION
  Report Type: Report from Study
  Country: US (occurrence: US)
  Receive Date: 20130116
  Receipt Date: 20130117
  Transmission Date: 20140127
  Serious: Yes (Other)
  Sender: FDA-Public Use
  Company Number: US-ROCHE-1177557

PATIENT
  Age: 32 Year
  Sex: Female
  Weight: 58.61 kg

DRUGS (16)
  1. TRASTUZUMAB [Suspect]
     Indication: BREAST CANCER
     Dosage: LAST DOSE PRIOR TO SAE WAS ON 21/DEC/2012
     Route: 042
     Dates: start: 20121108
  2. DOCETAXEL [Suspect]
     Indication: PRODUCT USED FOR UNKNOWN INDICATION
     Route: 065
  3. CARBOPLATIN [Suspect]
     Indication: PRODUCT USED FOR UNKNOWN INDICATION
     Route: 065
  4. NEULASTA [Concomitant]
     Route: 065
     Dates: start: 20121202
  5. VENTOLIN HFA [Concomitant]
     Indication: DYSPNOEA
     Route: 065
  6. CLINDAMYCIN PHOSPHATE [Concomitant]
     Route: 065
  7. CODEINE/GUAIFENESIN [Concomitant]
     Indication: COUGH
     Dosage: 10MG TO 100MG/5ML
     Route: 048
  8. DEXAMETHASONE [Concomitant]
     Route: 048
  9. FLOVENT HFA [Concomitant]
     Route: 065
  10. HYDROCHLOROTHIAZIDE [Concomitant]
     Route: 065
  11. LORAZEPAM [Concomitant]
     Indication: NAUSEA
     Route: 065
  12. NAPROXEN [Concomitant]
     Route: 048
  13. ONDANSETRON HCL [Concomitant]
     Indication: NAUSEA
     Route: 048
  14. PROCHLORPERAZINE MALEATE [Concomitant]
     Indication: NAUSEA
     Route: 065
  15. SULFAMETHOXAZOLE/TRIMETHOPRIM [Concomitant]
     Dosage: 800MG/160MG FOR 5 DAYS
     Route: 048
  16. PERTUZUMAB [Suspect]
     Indication: BREAST CANCER
     Dosage: LAST DOSE PRIOR TO SAE 21/DEC/2012
     Route: 042
     Dates: start: 20121108

REACTIONS (1)
  - Epistaxis [Unknown]
